FAERS Safety Report 4409949-7 (Version None)
Quarter: 2004Q3

REPORT INFORMATION
  Report Type: 
  Country: None (occurrence: None)
  Receive Date: 20040723
  Receipt Date: 20040708
  Transmission Date: 20050211
  Serious: Yes (Other)
  Sender: FDA-Public Use
  Company Number: HQWYE040613JUL04

PATIENT
  Age: 50 Year
  Sex: Male
  Weight: 104.42 kg

DRUGS (4)
  1. ALAVERT [Suspect]
     Indication: LACRIMATION INCREASED
     Dosage: SEE IMAGE
     Route: 048
     Dates: start: 20040701, end: 20040701
  2. ALAVERT [Suspect]
     Indication: NASAL CONGESTION
     Dosage: SEE IMAGE
     Route: 048
     Dates: start: 20040701, end: 20040701
  3. ALAVERT [Suspect]
     Indication: LACRIMATION INCREASED
     Dosage: SEE IMAGE
     Route: 048
     Dates: start: 20040707, end: 20040707
  4. ALAVERT [Suspect]
     Indication: NASAL CONGESTION
     Dosage: SEE IMAGE
     Route: 048
     Dates: start: 20040707, end: 20040707

REACTIONS (4)
  - BLOOD PRESSURE INCREASED [None]
  - DRUG EFFECT DECREASED [None]
  - INTENTIONAL OVERDOSE [None]
  - MEDICATION ERROR [None]
